FAERS Safety Report 11215216 (Version 1)
Quarter: 2015Q2

REPORT INFORMATION
  Report Type: Spontaneous
  Country: US (occurrence: US)
  Receive Date: 20150624
  Receipt Date: 20150624
  Transmission Date: 20150821
  Serious: No
  Sender: FDA-Public Use
  Company Number: US-PFIZER INC-2015207575

PATIENT
  Age: 57 Year
  Sex: Female

DRUGS (1)
  1. SUTENT [Suspect]
     Active Substance: SUNITINIB MALATE
     Indication: THYROID CANCER
     Dosage: 37.5 MG, 1X/DAY
     Route: 048
     Dates: start: 20150603

REACTIONS (2)
  - Flatulence [Unknown]
  - Product use issue [Unknown]

NARRATIVE: CASE EVENT DATE: 20150618
